FAERS Safety Report 15494714 (Version 2)
Quarter: 2018Q4

REPORT INFORMATION
  Report Type: Spontaneous
  Country: DE (occurrence: DE)
  Receive Date: 20181012
  Receipt Date: 20181106
  Transmission Date: 20190205
  Serious: Yes (Other)
  Sender: FDA-Public Use
  Company Number: DE-BAUSCH-BL-2018-027660

PATIENT
  Age: 47 Year
  Sex: Male
  Weight: 83 kg

DRUGS (3)
  1. PREDNISOLONE. [Concomitant]
     Active Substance: PREDNISOLONE
     Indication: PRODUCT USED FOR UNKNOWN INDICATION
  2. ALDARA [Suspect]
     Active Substance: IMIQUIMOD
     Indication: OFF LABEL USE
  3. ALDARA [Suspect]
     Active Substance: IMIQUIMOD
     Indication: ANOGENITAL WARTS
     Route: 061
     Dates: start: 201712

REACTIONS (2)
  - Pulmonary sarcoidosis [Not Recovered/Not Resolved]
  - Off label use [Not Recovered/Not Resolved]

NARRATIVE: CASE EVENT DATE: 201712
